FAERS Safety Report 22243775 (Version 1)
Quarter: 2023Q2

REPORT INFORMATION
  Report Type: Spontaneous
  Country: US (occurrence: None)
  Receive Date: 20230420
  Receipt Date: 20230420
  Transmission Date: 20230722
  Serious: No
  Sender: FDA-Public Use
  Company Number: None

PATIENT
  Age: 66 Year
  Sex: Male

DRUGS (31)
  1. LENALIDOMIDE [Suspect]
     Active Substance: LENALIDOMIDE
     Indication: Plasma cell myeloma
     Dosage: FREQUENCY : DAILY;?
     Route: 048
  2. ANAPROX DS [Concomitant]
     Active Substance: NAPROXEN SODIUM
  3. ASPIRIN [Concomitant]
     Active Substance: ASPIRIN
  4. BIOTIN [Concomitant]
     Active Substance: BIOTIN
  5. COLACE [Concomitant]
     Active Substance: DOCUSATE SODIUM
  6. VITAMINS [Concomitant]
     Active Substance: VITAMINS
  7. DEXAMETHASONE [Concomitant]
     Active Substance: DEXAMETHASONE
  8. FISH OIL [Concomitant]
     Active Substance: FISH OIL
  9. FOLIC ACID [Concomitant]
     Active Substance: FOLIC ACID
  10. GLUCOSAMINE-CHONDROITIN DS [Concomitant]
  11. HYDROMET [Concomitant]
     Active Substance: HOMATROPINE METHYLBROMIDE\HYDROCODONE BITARTRATE
  12. LECITHIN [Concomitant]
     Active Substance: LECITHIN
  13. LOPERAMIDE [Concomitant]
     Active Substance: LOPERAMIDE
  14. LOSARTAN [Concomitant]
     Active Substance: LOSARTAN
  15. LOSARTAN [Concomitant]
     Active Substance: LOSARTAN
  16. MAGNESIUM [Concomitant]
     Active Substance: MAGNESIUM
  17. MAGNESIUM [Concomitant]
     Active Substance: MAGNESIUM
  18. MIRALAX [Concomitant]
     Active Substance: POLYETHYLENE GLYCOL 3350
  19. NASONEX [Concomitant]
     Active Substance: MOMETASONE FUROATE
  20. OMEGA 3 [Concomitant]
     Active Substance: CAPSAICIN
  21. PANTOPRAZOLE [Concomitant]
     Active Substance: PANTOPRAZOLE
  22. POTASSIUM [Concomitant]
     Active Substance: POTASSIUM
  23. PREDNISONE [Concomitant]
     Active Substance: PREDNISONE
  24. TRAMADOL [Concomitant]
     Active Substance: TRAMADOL
  25. TRAZODONE [Concomitant]
     Active Substance: TRAZODONE HYDROCHLORIDE
  26. HERBALS\TURMERIC [Concomitant]
     Active Substance: HERBALS\TURMERIC
  27. VALACYCLOVIR [Concomitant]
     Active Substance: VALACYCLOVIR HYDROCHLORIDE
  28. VITAMIN B COMPLEX [Concomitant]
     Active Substance: CYANOCOBALAMIN\DEXPANTHENOL\NIACINAMIDE\PYRIDOXINE HYDROCHLORIDE\RIBOFLAVIN 5^-PHOSPHATE SODIUM\THIA
  29. VITAMIN D3 [Concomitant]
     Active Substance: CHOLECALCIFEROL
  30. ZINC [Concomitant]
     Active Substance: ZINC
  31. ZOFRAN [Concomitant]
     Active Substance: ONDANSETRON HYDROCHLORIDE

REACTIONS (3)
  - Sinusitis [None]
  - Rash [None]
  - Rash [None]
